FAERS Safety Report 6844783-X (Version None)
Quarter: 2010Q3

REPORT INFORMATION
  Report Type: 
  Country: None (occurrence: None)
  Receive Date: 20100715
  Receipt Date: 20100706
  Transmission Date: 20110219
  Serious: Yes (Other)
  Sender: FDA-Public Use
  Company Number: US-WYE-H15999810

PATIENT
  Sex: Female
  Weight: 72.64 kg

DRUGS (7)
  1. EFFEXOR XR [Suspect]
     Indication: DEPRESSION
     Dates: start: 20070101, end: 20100617
  2. EFFEXOR XR [Suspect]
     Dosage: TOOK 75 MG DAILY ALTERNATING WITH 1/2 OF 75 MG DAILY
     Dates: start: 20100618, end: 20100601
  3. CETIRIZINE HCL [Concomitant]
     Indication: HYPERSENSITIVITY
     Dosage: UNKNOWN
  4. AZATHIOPRINE [Concomitant]
     Indication: CUTIS LAXA
     Dosage: 50 MG, FREQUENCY NOT SPECIFIED
  5. CRESTOR [Concomitant]
     Dosage: 5 MG, FREQUENCY NOT SPECIFIED
  6. LISINOPRIL AND HYDROCHLOROTHIAZIDE [Concomitant]
     Dosage: ^20/25 MG^
  7. LEVOTHYROXINE SODIUM [Concomitant]
     Indication: THYROID DISORDER
     Dosage: 50 MCG, FREQUENCY NOT SPECIFIED

REACTIONS (4)
  - AGEUSIA [None]
  - CARPAL TUNNEL SYNDROME [None]
  - DRUG WITHDRAWAL SYNDROME [None]
  - INTENTIONAL DRUG MISUSE [None]
